FAERS Safety Report 10407122 (Version 2)
Quarter: 2015Q1

REPORT INFORMATION
  Report Type: Spontaneous
  Country: US (occurrence: US)
  Receive Date: 20140825
  Receipt Date: 20150204
  Transmission Date: 20150720
  Serious: Yes (Other)
  Sender: FDA-Public Use
  Company Number: US-GLAXOSMITHKLINE-A1086159A

PATIENT

DRUGS (5)
  1. VIMPAT [Interacting]
     Active Substance: LACOSAMIDE
     Indication: PRODUCT USED FOR UNKNOWN INDICATION
     Dosage: UNK, U
     Route: 065
  2. LAMICTAL [Suspect]
     Active Substance: LAMOTRIGINE
     Indication: EPILEPSY
     Dosage: 600 MG, U
     Route: 065
  3. KEPPRA [Interacting]
     Active Substance: LEVETIRACETAM
     Dosage: 1000 MG, U
     Route: 065
  4. TEGRETOL [Concomitant]
     Active Substance: CARBAMAZEPINE
     Dosage: UNK
  5. KEPPRA [Interacting]
     Active Substance: LEVETIRACETAM
     Indication: EPILEPSY
     Dosage: 2000 MG, U
     Route: 065
     Dates: start: 2013

REACTIONS (12)
  - Disorientation [Recovered/Resolved]
  - Seizure [Recovering/Resolving]
  - Dizziness [Unknown]
  - Feeling abnormal [Unknown]
  - Drug interaction [Unknown]
  - Depression [Unknown]
  - Depressed mood [Unknown]
  - Emotional disorder [Unknown]
  - Drug ineffective [Recovering/Resolving]
  - Fatigue [Unknown]
  - Mood swings [Unknown]
  - Aggression [Unknown]
